FAERS Safety Report 7844748 (Version 3)
Quarter: 2012Q4

REPORT INFORMATION
  Report Type: 
  Country: CN (occurrence: CN)
  Receive Date: 20110307
  Receipt Date: 20121012
  Transmission Date: 20130627
  Serious: Yes (Death)
  Sender: FDA-Public Use
  Company Number: CN-BAYER-2011-018971

PATIENT
  Age: 66 Year
  Sex: Male
  Weight: 52 kg

DRUGS (9)
  1. ULTRAVIST [Suspect]
     Indication: ARTERIOGRAM CORONARY
     Dosage: 30 ml, UNK
     Dates: start: 20110228, end: 20110228
  2. CLOPIDOGREL [Suspect]
     Dosage: 75 mg, QD
     Dates: start: 20110222
  3. BAYASPIRIN [Concomitant]
     Dosage: 300 mg, QD
     Dates: start: 20110222
  4. ATORVASTATIN [Concomitant]
     Dosage: 20 mg, QD
     Dates: start: 20110222
  5. ISOSORBIDE MONONITRATE [Concomitant]
     Dosage: 15 mg, QD
     Dates: start: 20110222
  6. DILTIAZEM ER [Concomitant]
     Dosage: 90 mg, QD
     Dates: start: 20110222
  7. METOPROLOL TARTRATE [Concomitant]
     Dosage: 12.5 mg, BID
     Dates: start: 20110222
  8. ESOMEPRAZOLE [Concomitant]
     Dosage: 20 mg, QD
     Dates: start: 20110222
  9. FELODIPINE [Concomitant]
     Dosage: 5 mg, QD
     Dates: start: 20110222

REACTIONS (5)
  - Coronary artery disease [Fatal]
  - Anaphylactic shock [Fatal]
  - Blood pressure fluctuation [Fatal]
  - Acute pulmonary oedema [Fatal]
  - Multi-organ failure [Fatal]
